FAERS Safety Report 7708537-4 (Version None)
Quarter: 2011Q3

REPORT INFORMATION
  Report Type: 
  Country: None (occurrence: None)
  Receive Date: 20110824
  Receipt Date: 20110824
  Transmission Date: 20111222
  Serious: Yes (Other)
  Sender: FDA-Public Use
  Company Number: None

PATIENT
  Sex: Male
  Weight: 78.4723 kg

DRUGS (1)
  1. AMBIEN [Suspect]
     Indication: INSOMNIA
     Dosage: AMBIEN 10MG QHS ORAL
     Route: 048
     Dates: start: 20100110, end: 20100210

REACTIONS (2)
  - INSOMNIA [None]
  - DRUG INEFFECTIVE [None]
